FAERS Safety Report 7352765-7 (Version None)
Quarter: 2011Q1

REPORT INFORMATION
  Report Type: 
  Country: None (occurrence: None)
  Receive Date: 20110302
  Receipt Date: 20100208
  Transmission Date: 20110831
  Serious: Yes (Other)
  Sender: FDA-Public Use
  Company Number: 304109

PATIENT
  Age: 86 Year
  Sex: Male
  Weight: 72.6 kg

DRUGS (6)
  1. ASPIRIN [Concomitant]
  2. ACTOS [Concomitant]
  3. ATENOLOL [Concomitant]
  4. ADVICOR [Concomitant]
  5. NOVOLIN N [Suspect]
     Indication: INSULIN-REQUIRING TYPE 2 DIABETES MELLITUS
     Dosage: 10 IU, QD, SUBCUTANEOUS
     Route: 058
     Dates: start: 20030101
  6. GLIMEPIRIDE [Suspect]
     Indication: INSULIN-REQUIRING TYPE 2 DIABETES MELLITUS

REACTIONS (3)
  - BLOOD GLUCOSE INCREASED [None]
  - HYPOGLYCAEMIC SEIZURE [None]
  - CONVULSION [None]
